FAERS Safety Report 8274137-3 (Version None)
Quarter: 2012Q2

REPORT INFORMATION
  Report Type: 
  Country: None (occurrence: None)
  Receive Date: 20120411
  Receipt Date: 20120405
  Transmission Date: 20120825
  Serious: No
  Sender: FDA-Public Use
  Company Number: US-PFIZER INC-2012086788

PATIENT
  Sex: Female
  Weight: 54.422 kg

DRUGS (1)
  1. XALATAN [Suspect]
     Indication: GLAUCOMA
     Dosage: ONE DROP IN RIGHT EYE DAILY
     Route: 047

REACTIONS (2)
  - BLOOD SODIUM DECREASED [None]
  - INCORRECT DOSE ADMINISTERED [None]
